FAERS Safety Report 22309107 (Version 1)
Quarter: 2023Q2

REPORT INFORMATION
  Report Type: Spontaneous
  Country: US (occurrence: None)
  Receive Date: 20230511
  Receipt Date: 20230511
  Transmission Date: 20230721
  Serious: No
  Sender: FDA-Public Use
  Company Number: US-ROCHE-3315501

PATIENT
  Sex: Male

DRUGS (2)
  1. OCREVUS [Suspect]
     Active Substance: OCRELIZUMAB
     Indication: Relapsing-remitting multiple sclerosis
     Dosage: ONGOING: NO
     Route: 065
     Dates: end: 2019
  2. OCREVUS [Suspect]
     Active Substance: OCRELIZUMAB
     Indication: Primary progressive multiple sclerosis

REACTIONS (6)
  - T-lymphocyte count increased [Unknown]
  - Blood creatinine increased [Unknown]
  - Muscular weakness [Unknown]
  - Hypokinesia [Unknown]
  - CD4 lymphocytes increased [Unknown]
  - CD4/CD8 ratio increased [Unknown]
